FAERS Safety Report 6114965-3 (Version None)
Quarter: 2009Q1

REPORT INFORMATION
  Report Type: 
  Country: None (occurrence: None)
  Receive Date: 20090313
  Receipt Date: 20090305
  Transmission Date: 20090719
  Serious: Yes (Other)
  Sender: FDA-Public Use
  Company Number: US-BAYER-200910614BCC

PATIENT
  Age: 49 Year
  Sex: Male
  Weight: 68 kg

DRUGS (11)
  1. ASPIRIN [Suspect]
     Indication: ANTIPLATELET THERAPY
     Dosage: UNIT DOSE: 325 MG
  2. ASPIRIN [Suspect]
     Dosage: UNIT DOSE: 81 MG
  3. PLAVIX [Suspect]
     Indication: ANTIPLATELET THERAPY
  4. ALBUTEROL [Concomitant]
  5. ZETIA [Concomitant]
  6. ADVAIR HFA [Concomitant]
  7. TRICOR [Concomitant]
  8. SINGULAIR [Concomitant]
  9. LIPITOR [Concomitant]
  10. METOPROLOL TARTRATE [Concomitant]
  11. SORIATANE [Concomitant]
     Indication: PSORIASIS
     Dates: start: 20080301, end: 20081120

REACTIONS (2)
  - EPISTAXIS [None]
  - WEIGHT DECREASED [None]
